FAERS Safety Report 23052709 (Version 3)
Quarter: 2023Q4

REPORT INFORMATION
  Report Type: Spontaneous
  Country: US (occurrence: US)
  Receive Date: 20231011
  Receipt Date: 20231228
  Transmission Date: 20240110
  Serious: No
  Sender: FDA-Public Use
  Company Number: US-SA-SAC20231009001368

PATIENT
  Age: 13 Year
  Sex: Male

DRUGS (2)
  1. ELOCTATE [Suspect]
     Active Substance: EFMOROCTOCOG ALFA
     Indication: Haemorrhage
     Dosage: 3202 U (+/- 10%), PRN (24 HOURS AS NEEDED FOR MODERATE TO SEVERE BLEEDING)
     Route: 042
  2. ELOCTATE [Suspect]
     Active Substance: EFMOROCTOCOG ALFA
     Indication: Haemorrhage
     Dosage: 3202 U (+/- 10%), PRN (24 HOURS AS NEEDED FOR MODERATE TO SEVERE BLEEDING)
     Route: 042

REACTIONS (6)
  - Skin laceration [Unknown]
  - Fall [Unknown]
  - Ear infection [Recovering/Resolving]
  - Ear pain [Recovering/Resolving]
  - Pharyngitis streptococcal [Recovering/Resolving]
  - Oropharyngeal pain [Recovering/Resolving]

NARRATIVE: CASE EVENT DATE: 20230901
